FAERS Safety Report 4558585-0 (Version None)
Quarter: 2005Q1

REPORT INFORMATION
  Report Type: 
  Country: None (occurrence: None)
  Receive Date: 20050119
  Receipt Date: 20050107
  Transmission Date: 20050727
  Serious: Yes (Hospitalization)
  Sender: FDA-Public Use
  Company Number: 001-0981-992915

PATIENT
  Age: 75 Year
  Sex: Male
  Weight: 99.5 kg

DRUGS (9)
  1. ATORVASTATIN (ATORVASTATIN) [Suspect]
     Indication: CORONARY ARTERY DISEASE
     Dosage: SEE IMAGE, ORAL
     Route: 048
     Dates: start: 19980908, end: 19981103
  2. ATORVASTATIN (ATORVASTATIN) [Suspect]
     Indication: CORONARY ARTERY DISEASE
     Dosage: SEE IMAGE, ORAL
     Route: 048
     Dates: start: 19981103
  3. LEVOTHYROXINE SODIUM [Concomitant]
  4. ISOSORBIDE MONONITRATE [Concomitant]
  5. METOPROLOL TARTRATE [Concomitant]
  6. ASPIRIN [Concomitant]
  7. TOCOPHEROL (TOCOPHEROL) [Concomitant]
  8. ANTIOXIDANT VITAMINS (VITAMINS) [Concomitant]
  9. MULTIVITAMIN [Concomitant]

REACTIONS (2)
  - COLON CANCER [None]
  - POLYP COLORECTAL [None]
